FAERS Safety Report 9709899 (Version 1)
Quarter: 2013Q4

REPORT INFORMATION
  Report Type: Spontaneous
  Country: US (occurrence: US)
  Receive Date: 20131126
  Receipt Date: 20131126
  Transmission Date: 20140711
  Serious: No
  Sender: FDA-Public Use
  Company Number: US-PFIZER INC-2013334534

PATIENT
  Age: 58 Year
  Sex: Female
  Weight: 78 kg

DRUGS (7)
  1. ATIVAN [Suspect]
     Indication: ANXIETY
     Dosage: UNK
  2. ATIVAN [Suspect]
     Dosage: 0.5 MG, 1X/DAY
  3. LYRICA [Suspect]
     Indication: FIBROMYALGIA
     Dosage: 150 MG, 2X/DAY
     Route: 048
     Dates: start: 2008
  4. LYRICA [Suspect]
     Dosage: 150 MG, 1X/DAY
  5. GARCINIA CAMBOGIA [Suspect]
     Indication: WEIGHT CONTROL
     Dosage: UNK
  6. ZANTAC [Concomitant]
     Indication: GASTROOESOPHAGEAL REFLUX DISEASE
     Dosage: 300 MG, 1X/DAY
  7. MELATONIN [Concomitant]
     Indication: SLEEP DISORDER
     Dosage: 8 MG, 1X/DAY

REACTIONS (5)
  - Weight increased [Recovering/Resolving]
  - Malaise [Unknown]
  - Pain [Recovering/Resolving]
  - Dizziness [Unknown]
  - Fall [Unknown]
